FAERS Safety Report 5217016-8 (Version None)
Quarter: 2007Q1

REPORT INFORMATION
  Report Type: 
  Country: None (occurrence: None)
  Receive Date: 20070124
  Receipt Date: 20070117
  Transmission Date: 20070707
  Serious: Yes (Hospitalization)
  Sender: FDA-Public Use
  Company Number: JP-BAYER-200710036BYL

PATIENT
  Age: 40 Year
  Sex: Male

DRUGS (4)
  1. ASPIRIN [Suspect]
     Dosage: TOTAL DAILY DOSE: 100 MG  UNIT DOSE: 100 MG
     Route: 048
     Dates: start: 20061113, end: 20061123
  2. PANALDINE [Suspect]
     Route: 048
     Dates: start: 20061113, end: 20061123
  3. OMEPRAL [Suspect]
     Route: 048
     Dates: start: 20061113, end: 20061123
  4. PITUITARY HORMONE PREPARATIONS [Concomitant]
     Indication: BRAIN TUMOUR OPERATION
     Route: 065

REACTIONS (3)
  - DIARRHOEA [None]
  - PYREXIA [None]
  - RASH [None]
